FAERS Safety Report 15525182 (Version 1)
Quarter: 2018Q4

REPORT INFORMATION
  Report Type: Spontaneous
  Country: AU (occurrence: AU)
  Receive Date: 20181018
  Receipt Date: 20181018
  Transmission Date: 20190205
  Serious: Yes (Other)
  Sender: FDA-Public Use
  Company Number: AU-ESPERO PHARMACEUTICALS-ESP201810-000042

PATIENT
  Age: 79 Year
  Sex: Female

DRUGS (4)
  1. INDERAL [Concomitant]
     Active Substance: PROPRANOLOL HYDROCHLORIDE
  2. QUINATE [Concomitant]
  3. NITROLINGUAL PUMPSPRAY [Suspect]
     Active Substance: NITROGLYCERIN
     Indication: OESOPHAGEAL SPASM
     Dosage: 6 TO 10 SPRAYS DAILY
     Route: 060
  4. OSTEOMOL 665 PARACETAMOL [Concomitant]

REACTIONS (2)
  - Off label use [Recovered/Resolved]
  - Rectal haemorrhage [Recovered/Resolved]
